FAERS Safety Report 10075458 (Version 2)
Quarter: 2014Q2

REPORT INFORMATION
  Report Type: Spontaneous
  Country: GB (occurrence: GB)
  Receive Date: 20140414
  Receipt Date: 20140516
  Transmission Date: 20141212
  Serious: Yes (Hospitalization)
  Sender: FDA-Public Use
  Company Number: GB-ACCORD-022939

PATIENT
  Age: 42 Year
  Sex: Male

DRUGS (9)
  1. METHOTREXATE [Suspect]
     Indication: RHEUMATIC DISORDER
     Route: 048
     Dates: start: 20140308
  2. PIPERACILLIN / TAZOBACTAM [Interacting]
     Indication: SEPSIS
     Dosage: 4G/0.5G
     Route: 042
     Dates: start: 20140301, end: 20140308
  3. PREDNISOLONE [Concomitant]
     Indication: RHEUMATIC DISORDER
     Dosage: ONGOING
     Route: 048
  4. CLEXAN [Concomitant]
     Indication: THROMBOSIS PROPHYLAXIS
     Dosage: ONGOING
     Route: 058
  5. FOLATE SODIUM/FOLIC ACID [Concomitant]
     Indication: RHEUMATIC DISORDER
     Route: 048
     Dates: start: 20140307
  6. ALFACALCIDOL [Concomitant]
     Dosage: ONGOING
     Route: 048
  7. BISOPROLOL [Concomitant]
     Dosage: ONGOING
     Route: 048
  8. EPREX [Concomitant]
     Dosage: ONGOING
     Route: 058
  9. RANITIDINE [Concomitant]
     Dosage: ONGOING
     Route: 048

REACTIONS (3)
  - Neutropenia [Recovering/Resolving]
  - Off label use [Unknown]
  - Drug interaction [Unknown]
